FAERS Safety Report 4973792-0 (Version None)
Quarter: 2006Q2

REPORT INFORMATION
  Report Type: 
  Country: None (occurrence: None)
  Receive Date: 20060414
  Receipt Date: 20060324
  Transmission Date: 20061013
  Serious: Yes (Death)
  Sender: FDA-Public Use
  Company Number: US-MERCK-0603USA04285

PATIENT
  Age: 52 Year
  Sex: Male
  Weight: 72 kg

DRUGS (1)
  1. VIOXX [Suspect]
     Indication: ARTHRITIS
     Route: 048
     Dates: start: 19990801, end: 20010304

REACTIONS (11)
  - ARTERIOSCLEROSIS CORONARY ARTERY [None]
  - CARDIOMEGALY [None]
  - CORONARY OSTIAL STENOSIS [None]
  - GASTRIC DISORDER [None]
  - HYPERTENSIVE ENCEPHALOPATHY [None]
  - HYPERTENSIVE HEART DISEASE [None]
  - LACUNAR INFARCTION [None]
  - MYOCARDIAL ISCHAEMIA [None]
  - NEPHROSCLEROSIS [None]
  - SKIN LACERATION [None]
  - VENTRICULAR HYPERTROPHY [None]
